FAERS Safety Report 6788942-3 (Version None)
Quarter: 2010Q2

REPORT INFORMATION
  Report Type: 
  Country: None (occurrence: None)
  Receive Date: 20100623
  Receipt Date: 20080605
  Transmission Date: 20101027
  Serious: No
  Sender: FDA-Public Use
  Company Number: US-PFIZER INC-2008048057

PATIENT

DRUGS (2)
  1. GEODON [Suspect]
     Indication: BIPOLAR DISORDER
     Dates: start: 20070101
  2. LITHIUM [Suspect]

REACTIONS (1)
  - OEDEMA PERIPHERAL [None]
